FAERS Safety Report 5372637-7 (Version None)
Quarter: 2007Q2

REPORT INFORMATION
  Report Type: 
  Country: None (occurrence: None)
  Receive Date: 20070626
  Receipt Date: 20070614
  Transmission Date: 20071010
  Serious: Yes (Hospitalization)
  Sender: FDA-Public Use
  Company Number: GXKR2007GB05157

PATIENT
  Age: 68 Year
  Sex: Male

DRUGS (3)
  1. METFORMIN HCL [Suspect]
     Indication: DIABETES MELLITUS NON-INSULIN-DEPENDENT
     Dosage: 1 G, TID, ORAL
     Route: 048
  2. CORTICOSTEROIDS (NO INGREDIENTS/SUBSTANCES) UNKNOWN [Concomitant]
  3. MESALAZINE (MESALAZINE) UNKNOWN [Concomitant]

REACTIONS (14)
  - ATRIAL FIBRILLATION [None]
  - BLOOD PRESSURE DECREASED [None]
  - CIRCULATORY COLLAPSE [None]
  - COLITIS [None]
  - DEHYDRATION [None]
  - DEPRESSED LEVEL OF CONSCIOUSNESS [None]
  - HYPOVOLAEMIA [None]
  - INCOHERENT [None]
  - LACTIC ACIDOSIS [None]
  - MALAISE [None]
  - PERIPHERAL COLDNESS [None]
  - RENAL FAILURE ACUTE [None]
  - SOMNOLENCE [None]
  - TACHYPNOEA [None]
